FAERS Safety Report 23820522 (Version 5)
Quarter: 2024Q2

REPORT INFORMATION
  Report Type: Spontaneous
  Country: US (occurrence: US)
  Receive Date: 20240506
  Receipt Date: 20240527
  Transmission Date: 20240715
  Serious: Yes (Other)
  Sender: FDA-Public Use
  Company Number: US-AMGEN-USASP2024089584

PATIENT
  Age: 75 Year
  Sex: Female

DRUGS (1)
  1. REPATHA [Suspect]
     Active Substance: EVOLOCUMAB
     Indication: Low density lipoprotein increased
     Dosage: 140, Q2WK
     Route: 065
     Dates: start: 2024, end: 2024

REACTIONS (5)
  - Transient ischaemic attack [Unknown]
  - Pain in extremity [Recovering/Resolving]
  - Herpes zoster [Recovering/Resolving]
  - Fall [Unknown]
  - Sleep disorder due to a general medical condition [Unknown]

NARRATIVE: CASE EVENT DATE: 20240101
